FAERS Safety Report 9430133 (Version 3)
Quarter: 2013Q4

REPORT INFORMATION
  Report Type: Report from Study
  Country: NL (occurrence: NL)
  Receive Date: 20130730
  Receipt Date: 20131007
  Transmission Date: 20140711
  Serious: Yes (Hospitalization, Other)
  Sender: FDA-Public Use
  Company Number: NL-CELGENEUS-114-21880-13072434

PATIENT
  Age: 63 Year
  Sex: Female
  Weight: 72 kg

DRUGS (36)
  1. REVLIMID [Suspect]
     Indication: PLASMA CELL MYELOMA
     Route: 048
     Dates: start: 20090407, end: 20090427
  2. REVLIMID [Suspect]
     Route: 048
     Dates: start: 20090505, end: 20090525
  3. REVLIMID [Suspect]
     Route: 048
     Dates: start: 20090602, end: 20090622
  4. REVLIMID [Suspect]
     Route: 048
     Dates: start: 20090630, end: 20090720
  5. REVLIMID [Suspect]
     Route: 048
     Dates: start: 20090728, end: 20090817
  6. REVLIMID [Suspect]
     Route: 048
     Dates: start: 20090825, end: 20090914
  7. REVLIMID [Suspect]
     Dosage: 10 MILLIGRAM
     Route: 048
     Dates: start: 20090922, end: 20100816
  8. BORTEZOMIB [Suspect]
     Indication: PLASMA CELL MYELOMA
     Dosage: 1.6 MILLIGRAM/SQ. METER
     Route: 041
     Dates: start: 20090407
  9. BORTEZOMIB [Suspect]
     Indication: DISEASE PROGRESSION
     Route: 041
     Dates: start: 20110628, end: 20120803
  10. BORTEZOMIB [Suspect]
     Dosage: 1.6 MILLIGRAM/SQ. METER
     Route: 041
     Dates: end: 20090908
  11. BORTEZOMIB [Suspect]
     Route: 041
     Dates: start: 20100914, end: 20101015
  12. BORTEZOMIB [Suspect]
     Route: 041
     Dates: start: 20101026, end: 20101105
  13. BORTEZOMIB [Suspect]
     Route: 041
     Dates: start: 20110104, end: 20110405
  14. BORTEZOMIB [Suspect]
     Route: 041
     Dates: start: 20110628, end: 20111205
  15. DEXAMETHASONE [Suspect]
     Indication: PLASMA CELL MYELOMA
     Route: 048
     Dates: start: 20090825, end: 20090909
  16. MELPHALAN [Concomitant]
     Indication: PLASMA CELL MYELOMA
     Route: 065
     Dates: start: 200703, end: 200712
  17. PREDNISOLONE [Concomitant]
     Indication: PLASMA CELL MYELOMA
     Dosage: 80 MILLIGRAM
     Route: 065
     Dates: start: 200703, end: 200712
  18. ENDOXAN [Concomitant]
     Indication: PLASMA CELL MYELOMA
     Route: 065
     Dates: start: 20110628, end: 201208
  19. HYDROCHLOROTHIAZIDE [Concomitant]
     Indication: HYPERTENSION
     Dosage: 25 MILLIGRAM
     Route: 065
  20. METOCLOPRAMIDE [Concomitant]
     Indication: GASTROINTESTINAL DISORDER
     Dosage: 30 MILLIGRAM
     Route: 065
  21. AMITRIPTYLINE [Concomitant]
     Indication: ANTIDEPRESSANT THERAPY
     Dosage: 150 MILLIGRAM
     Route: 065
  22. PERSANTIN [Concomitant]
     Indication: ANTICOAGULANT THERAPY
     Dosage: 300 MILLIGRAM
     Route: 065
  23. DIPHANTOINE [Concomitant]
     Indication: EPILEPSY
     Dosage: 150 + 200 MG
     Route: 065
  24. TRAMADOL [Concomitant]
     Indication: PAIN
     Dosage: 150 MILLIGRAM
     Route: 065
  25. TRAMADOL [Concomitant]
     Dosage: 150 MILLIGRAM
     Route: 065
  26. OMEPRAZOLE [Concomitant]
     Indication: PROPHYLAXIS
     Dosage: 40 MILLIGRAM
     Route: 065
  27. TILDIEM [Concomitant]
     Indication: HYPERTENSION
     Route: 065
  28. TILDIEM [Concomitant]
     Indication: ANGINA PECTORIS
  29. ASCAL [Concomitant]
     Indication: ANTICOAGULANT THERAPY
     Route: 065
  30. ZELITREX [Concomitant]
     Indication: ANTIVIRAL PROPHYLAXIS
     Route: 065
  31. PRAVASTATINE [Concomitant]
     Indication: CARDIOVASCULAR DISORDER
     Route: 065
  32. FOSAMAX [Concomitant]
     Indication: PROPHYLAXIS
     Route: 065
  33. ARCOXIA [Concomitant]
     Indication: ANTIINFLAMMATORY THERAPY
     Route: 065
  34. PARACETAMOL [Concomitant]
     Indication: PAIN
     Route: 065
  35. XANAX [Concomitant]
     Indication: ANXIETY
     Route: 065
  36. DUROGESIC [Concomitant]
     Indication: PAIN
     Route: 065

REACTIONS (1)
  - Invasive ductal breast carcinoma [Not Recovered/Not Resolved]
